FAERS Safety Report 23729598 (Version 2)
Quarter: 2024Q2

REPORT INFORMATION
  Report Type: Report from Study
  Country: US (occurrence: US)
  Receive Date: 20240410
  Receipt Date: 20240414
  Transmission Date: 20240715
  Serious: Yes (Death)
  Sender: FDA-Public Use
  Company Number: US-ABBVIE-5712373

PATIENT
  Age: 67 Year
  Sex: Male

DRUGS (1)
  1. SYNTHROID [Suspect]
     Active Substance: LEVOTHYROXINE SODIUM
     Indication: Hypothyroidism
     Dosage: FORM STRENGTH: 200 MICROGRAM,?START DATE TEXT: UNKNOWN?STOP DATE TEXT: UNKNOWN
     Route: 048

REACTIONS (4)
  - Completed suicide [Fatal]
  - Asthma [Unknown]
  - Diabetes mellitus [Unknown]
  - Unevaluable event [Unknown]

NARRATIVE: CASE EVENT DATE: 20240406
